FAERS Safety Report 21036676 (Version 1)
Quarter: 2022Q3

REPORT INFORMATION
  Report Type: Spontaneous
  Country: ES (occurrence: ES)
  Receive Date: 20220702
  Receipt Date: 20220702
  Transmission Date: 20221027
  Serious: Yes (Other)
  Sender: FDA-Public Use
  Company Number: None

PATIENT
  Age: 51 Year
  Sex: Female

DRUGS (4)
  1. AJOVY [Suspect]
     Active Substance: FREMANEZUMAB-VFRM
     Indication: Migraine
     Dosage: STRENGTH : 225 MG , UNIT DOSE : 225 MG , DURATION : 59 DAYS , FREQUENCY TIME : 1 MONTH , 1 PRE-FILLE
     Route: 058
     Dates: start: 20220128, end: 20220328
  2. NAPROXEN SODIUM CINFA [Concomitant]
     Indication: Migraine
     Dosage: NAPROXEN SODIUM CINFA 550 MG TABLETS EFG, 40 TABLETS , STRENGTH : 550 MG , FREQUENCY TIME : 1 AS REQ
     Route: 048
     Dates: start: 20211001
  3. DEXKETOPROFEN TROMETAMOL [Concomitant]
     Active Substance: DEXKETOPROFEN TROMETAMOL
     Indication: Migraine
     Dosage: 20 CAPSULES , STRENGTH : 25 MG , UNIT DOSE : 25 MG , FREQUENCY TIME : 1 AS REQUIRED
     Route: 048
     Dates: start: 20211001
  4. TRYPTIZOL [Concomitant]
     Active Substance: AMITRIPTYLINE HYDROCHLORIDE
     Indication: Migraine
     Dosage: 60 TABLETS , STRENGTH : 25 MG , UNIT DOSE : 50 MG, FREQUENCY TIME : 1 DAY
     Route: 048
     Dates: start: 20211001

REACTIONS (2)
  - Eczema [Recovering/Resolving]
  - Raynaud^s phenomenon [Recovering/Resolving]

NARRATIVE: CASE EVENT DATE: 20220316
